FAERS Safety Report 16513302 (Version 1)
Quarter: 2019Q3

REPORT INFORMATION
  Report Type: Spontaneous
  Country: DE (occurrence: DE)
  Receive Date: 20190702
  Receipt Date: 20190702
  Transmission Date: 20191004
  Serious: Yes (Other)
  Sender: FDA-Public Use
  Company Number: DE-MYLANLABS-2019M1060247

PATIENT
  Age: 82 Year
  Sex: Female

DRUGS (1)
  1. TRAMADOL. [Suspect]
     Active Substance: TRAMADOL
     Indication: AGITATION
     Dosage: UNK
     Dates: start: 20161221

REACTIONS (3)
  - Overdose [Unknown]
  - Circulatory collapse [Unknown]
  - Off label use [Unknown]

NARRATIVE: CASE EVENT DATE: 20161221
